FAERS Safety Report 5602287-6 (Version None)
Quarter: 2008Q1

REPORT INFORMATION
  Report Type: 
  Country: None (occurrence: None)
  Receive Date: 20080125
  Receipt Date: 20080115
  Transmission Date: 20080703
  Serious: Yes (Hospitalization, Other)
  Sender: FDA-Public Use
  Company Number: US-ROCHE-532538

PATIENT
  Age: 44 Year
  Sex: Male

DRUGS (2)
  1. PEGASYS [Suspect]
     Indication: HEPATITIS C
     Route: 065
     Dates: start: 20070928, end: 20071105
  2. COPEGUS [Suspect]
     Indication: HEPATITIS C
     Route: 065
     Dates: start: 20070928, end: 20071105

REACTIONS (9)
  - BACTERIAL INFECTION [None]
  - DERMATITIS [None]
  - ENCEPHALOPATHY [None]
  - EPISTAXIS [None]
  - HAEMOPTYSIS [None]
  - PLATELET COUNT DECREASED [None]
  - RECTAL ABSCESS [None]
  - RECTAL HAEMORRHAGE [None]
  - SPEECH DISORDER [None]
